FAERS Safety Report 8712128 (Version 2)
Quarter: 2014Q3

REPORT INFORMATION
  Report Type: Report from Study
  Country: DE (occurrence: DE)
  Receive Date: 20120807
  Receipt Date: 20140723
  Transmission Date: 20150326
  Serious: Yes (Life-Threatening, Hospitalization, Other)
  Sender: FDA-Public Use
  Company Number: DE-ROCHE-1095700

PATIENT
  Age: 59 Year
  Sex: Male
  Weight: 120.9 kg

DRUGS (1)
  1. METHOXY POLYETHYLENE GLYCOL-EPOETIN BETA [Suspect]
     Active Substance: PEGZEREPOETIN ALFA
     Indication: NEPHROGENIC ANAEMIA
     Dosage: LAST DOSE PRIOR TO SAE: 31/JAN/2012
     Route: 058
     Dates: start: 20110913

REACTIONS (4)
  - Diabetic foot [Not Recovered/Not Resolved]
  - Peripheral arterial occlusive disease [Unknown]
  - Arteriosclerosis Moenckeberg-type [Unknown]
  - Abscess [Unknown]

NARRATIVE: CASE EVENT DATE: 20120207
